FAERS Safety Report 17215188 (Version 1)
Quarter: 2019Q4

REPORT INFORMATION
  Report Type: Spontaneous
  Country: US (occurrence: US)
  Receive Date: 20191206
  Receipt Date: 20191206
  Transmission Date: 20200122
  Serious: Yes (Hospitalization)
  Sender: FDA-Public Use
  Company Number: None

PATIENT
  Sex: Male
  Weight: 150.5 kg

DRUGS (4)
  1. LEUCOVORIN CALCIUM. [Suspect]
     Active Substance: LEUCOVORIN CALCIUM
  2. BEVACIZUMAB(RHUMAB VEGF) [Suspect]
     Active Substance: BEVACIZUMAB
  3. ELOXATIN [Suspect]
     Active Substance: OXALIPLATIN
  4. 5-FLUOROURACIL (5-FU) (19893) [Suspect]
     Active Substance: FLUOROURACIL

REACTIONS (13)
  - Diarrhoea haemorrhagic [None]
  - Hypophagia [None]
  - Diarrhoea [None]
  - Skin infection [None]
  - Melaena [None]
  - Soft tissue infection [None]
  - Asthenia [None]
  - Abdominal pain [None]
  - Drug ineffective [None]
  - Abscess limb [None]
  - Nausea [None]
  - Vomiting [None]
  - Failure to thrive [None]

NARRATIVE: CASE EVENT DATE: 20191022
